FAERS Safety Report 20969089 (Version 1)
Quarter: 2022Q2

REPORT INFORMATION
  Report Type: Spontaneous
  Country: US (occurrence: US)
  Receive Date: 20220616
  Receipt Date: 20220616
  Transmission Date: 20220720
  Serious: No
  Sender: FDA-Public Use
  Company Number: US-Kaleo, Inc.-2022KL000038

PATIENT
  Age: 42 Year
  Sex: Female

DRUGS (1)
  1. AUVI-Q [Suspect]
     Active Substance: EPINEPHRINE

REACTIONS (3)
  - Exposure via skin contact [Recovered/Resolved]
  - Device issue [Not Recovered/Not Resolved]
  - Device operational issue [Not Recovered/Not Resolved]
